FAERS Safety Report 21616173 (Version 16)
Quarter: 2023Q2

REPORT INFORMATION
  Report Type: Report from Study
  Country: TR (occurrence: None)
  Receive Date: 20221118
  Receipt Date: 20230403
  Transmission Date: 20230722
  Serious: Yes (Hospitalization, Disabling)
  Sender: FDA-Public Use
  Company Number: TR-ROCHE-3202069

PATIENT
  Age: 60 Year
  Sex: Male
  Weight: 56 kg

DRUGS (7)
  1. TIRAGOLUMAB [Suspect]
     Active Substance: TIRAGOLUMAB
     Indication: Lung adenocarcinoma
     Dosage: ON 29/SEP/2022, HE RECEIVED THE MOST RECENT DOSE OF BLINDED TIRAGOLUMAB PRIOR TO AE/SAE.  AS PER PRO
     Route: 042
     Dates: start: 20210505
  2. ATEZOLIZUMAB [Suspect]
     Active Substance: ATEZOLIZUMAB
     Indication: Lung adenocarcinoma
     Dosage: ON 29/SEP/2022, HE RECEIVED THE MOST RECENT DOSE OF ATEZOLIZUMAB  PRIOR TO AE/SAE ?ON 20/DEC/2022, H
     Route: 041
     Dates: start: 20210505
  3. LEVOTHYROXINE SODIUM [Concomitant]
     Active Substance: LEVOTHYROXINE SODIUM
     Indication: Hypothyroidism
     Route: 048
     Dates: start: 20220602, end: 20220908
  4. LEVOTHYROXINE SODIUM [Concomitant]
     Active Substance: LEVOTHYROXINE SODIUM
     Route: 048
     Dates: start: 20220908, end: 20221220
  5. LEVOTHYROXINE SODIUM [Concomitant]
     Active Substance: LEVOTHYROXINE SODIUM
     Route: 048
     Dates: start: 20221220
  6. METHYLPREDNISOLONE [Concomitant]
     Active Substance: METHYLPREDNISOLONE
     Indication: Radiation necrosis
     Route: 042
     Dates: start: 20221022, end: 20221029
  7. PANTO (TURKEY) [Concomitant]
     Route: 048
     Dates: start: 20230114, end: 20230116

REACTIONS (1)
  - Neurological decompensation [Not Recovered/Not Resolved]

NARRATIVE: CASE EVENT DATE: 20221004
